FAERS Safety Report 5197165-3 (Version None)
Quarter: 2007Q1

REPORT INFORMATION
  Report Type: 
  Country: None (occurrence: None)
  Receive Date: 20070103
  Receipt Date: 20061222
  Transmission Date: 20070707
  Serious: Yes (Life-Threatening, Hospitalization, Other)
  Sender: FDA-Public Use
  Company Number: VN-GLAXOSMITHKLINE-B0452113A

PATIENT
  Age: 28 Year
  Sex: Female

DRUGS (2)
  1. ZANTAC [Suspect]
     Indication: CAESAREAN SECTION
     Dosage: 50MG UNKNOWN
     Route: 042
     Dates: start: 20061221, end: 20061221
  2. GENERAL ENDOTRACHEAL ANESTHESIA [Concomitant]

REACTIONS (4)
  - DYSPNOEA [None]
  - FACE OEDEMA [None]
  - HYPOTENSION [None]
  - LARYNGEAL OEDEMA [None]
